FAERS Safety Report 18835618 (Version 1)
Quarter: 2021Q1

REPORT INFORMATION
  Report Type: Spontaneous
  Country: US (occurrence: US)
  Receive Date: 20210203
  Receipt Date: 20210203
  Transmission Date: 20210419
  Serious: Yes (Other)
  Sender: FDA-Public Use
  Company Number: None

PATIENT
  Sex: Male

DRUGS (8)
  1. ETHYL ALCOHOL HAND SANITIZER [Suspect]
     Active Substance: ALCOHOL
  2. METRONIDAZOLE. [Suspect]
     Active Substance: METRONIDAZOLE
     Indication: ARTHROPOD BITE
     Dosage: ?          QUANTITY:1 TABLET(S);?
  3. IODINE. [Concomitant]
     Active Substance: IODINE
  4. LORATADINE. [Concomitant]
     Active Substance: LORATADINE
  5. VITAMIN [Concomitant]
     Active Substance: VITAMINS
  6. OTHER SUPPLEMENTS [Concomitant]
  7. LOSARTAN. [Concomitant]
     Active Substance: LOSARTAN
  8. ASPIRIN. [Concomitant]
     Active Substance: ASPIRIN

REACTIONS (5)
  - Abdominal pain lower [None]
  - Headache [None]
  - Product label issue [None]
  - Malaise [None]
  - Drug interaction [None]
